FAERS Safety Report 12612403 (Version 1)
Quarter: 2016Q3

REPORT INFORMATION
  Report Type: Spontaneous
  Country: GB (occurrence: GB)
  Receive Date: 20160801
  Receipt Date: 20160801
  Transmission Date: 20161109
  Serious: Yes (Other)
  Sender: FDA-Public Use
  Company Number: GB-SA-2016SA137074

PATIENT
  Age: 31 Year
  Sex: Female

DRUGS (1)
  1. ALEMTUZUMAB [Suspect]
     Active Substance: ALEMTUZUMAB
     Indication: MULTIPLE SCLEROSIS
     Route: 065

REACTIONS (9)
  - Pulmonary hypertension [Recovered/Resolved]
  - Hyperthyroidism [Recovered/Resolved]
  - Tricuspid valve incompetence [Recovered/Resolved]
  - Palpitations [Recovered/Resolved]
  - Cardiac murmur [Recovered/Resolved]
  - Dyspnoea exertional [Recovered/Resolved]
  - Right ventricular systolic pressure increased [Recovered/Resolved]
  - Oedema peripheral [Recovered/Resolved]
  - Headache [Recovered/Resolved]
